FAERS Safety Report 9412869 (Version 1)
Quarter: 2013Q3

REPORT INFORMATION
  Report Type: Spontaneous
  Country: CA (occurrence: CA)
  Receive Date: 20130722
  Receipt Date: 20130722
  Transmission Date: 20140515
  Serious: Yes (Hospitalization)
  Sender: FDA-Public Use
  Company Number: PHHY2013CA075994

PATIENT
  Sex: 0

DRUGS (5)
  1. GABAPENTIN [Suspect]
     Route: 064
  2. TRAZODONE [Suspect]
     Route: 064
  3. VENLAFAXINE [Suspect]
     Route: 064
  4. DIMENHYDRINATE [Suspect]
     Route: 064
  5. ELETRIPTAN [Suspect]
     Route: 064

REACTIONS (5)
  - Convulsion [Recovered/Resolved]
  - Neonatal respiratory distress syndrome [Recovered/Resolved]
  - Jaundice [Recovered/Resolved]
  - Sepsis [Recovered/Resolved]
  - Foetal exposure during pregnancy [Unknown]
